FAERS Safety Report 19704235 (Version 1)
Quarter: 2021Q3

REPORT INFORMATION
  Report Type: Spontaneous
  Country: US (occurrence: US)
  Receive Date: 20210815
  Receipt Date: 20210815
  Transmission Date: 20211014
  Serious: No
  Sender: FDA-Public Use
  Company Number: None

PATIENT
  Age: 47 Year
  Sex: Female
  Weight: 73.35 kg

DRUGS (1)
  1. BACTRIM DS [Suspect]
     Active Substance: SULFAMETHOXAZOLE\TRIMETHOPRIM
     Indication: SKIN INFECTION
     Dosage: ?          QUANTITY:28 TABLET(S);?
     Route: 048
     Dates: start: 20210810, end: 20210812

REACTIONS (2)
  - Pruritus [None]
  - Rash [None]

NARRATIVE: CASE EVENT DATE: 20210811
